FAERS Safety Report 4799956-7 (Version None)
Quarter: 2005Q4

REPORT INFORMATION
  Report Type: 
  Country: None (occurrence: None)
  Receive Date: 20051013
  Receipt Date: 20050923
  Transmission Date: 20060501
  Serious: Yes (Other)
  Sender: FDA-Public Use
  Company Number: ENTC2005-0280

PATIENT
  Age: 75 Year
  Sex: Male

DRUGS (1)
  1. STALEVO 100 [Suspect]
     Dosage: 300 MG/75 MG/600 MG, ORAL
     Route: 048
     Dates: start: 20050610

REACTIONS (1)
  - BRADYCARDIA [None]
